FAERS Safety Report 9242729 (Version 1)
Quarter: 2013Q2

REPORT INFORMATION
  Report Type: Spontaneous
  Country: US (occurrence: US)
  Receive Date: 20130419
  Receipt Date: 20130419
  Transmission Date: 20140414
  Serious: Yes (Death)
  Sender: FDA-Public Use
  Company Number: US-ELI_LILLY_AND_COMPANY-US201304003266

PATIENT
  Age: 39 Year
  Sex: Male

DRUGS (9)
  1. FLUOXETINE HYDROCHLORIDE [Suspect]
  2. LAMOTRIGINE [Concomitant]
  3. TRAZODONE [Concomitant]
  4. BENZTROPINE [Concomitant]
  5. HYDROXYZINE [Concomitant]
  6. METFORMIN [Concomitant]
  7. TEMAZEPAM [Concomitant]
  8. RISPERIDONE [Concomitant]
  9. SIMVASTATIN [Concomitant]

REACTIONS (3)
  - Toxicity to various agents [Fatal]
  - Arrhythmia [Fatal]
  - Drug interaction [Unknown]
